FAERS Safety Report 7640566-1 (Version None)
Quarter: 2011Q3

REPORT INFORMATION
  Report Type: 
  Country: None (occurrence: None)
  Receive Date: 20110728
  Receipt Date: 20110715
  Transmission Date: 20111222
  Serious: No
  Sender: FDA-Public Use
  Company Number: US-BIOGENIDEC-2011BI026408

PATIENT
  Sex: Female

DRUGS (1)
  1. AVONEX [Suspect]
     Indication: MULTIPLE SCLEROSIS
     Route: 030

REACTIONS (7)
  - GAIT DISTURBANCE [None]
  - LOSS OF CONTROL OF LEGS [None]
  - INJECTION SITE SCAR [None]
  - INJECTION SITE ERYTHEMA [None]
  - PERONEAL NERVE PALSY [None]
  - INCREASED TENDENCY TO BRUISE [None]
  - SENSATION OF HEAVINESS [None]
